FAERS Safety Report 8302958-7 (Version None)
Quarter: 2012Q2

REPORT INFORMATION
  Report Type: 
  Country: None (occurrence: None)
  Receive Date: 20120420
  Receipt Date: 20120403
  Transmission Date: 20120825
  Serious: Yes (Other)
  Sender: FDA-Public Use
  Company Number: PHHY2012BR018647

PATIENT
  Sex: Female

DRUGS (2)
  1. LEVOTHYROXINE SODIUM [Concomitant]
     Indication: HYPOTHYROIDISM
     Dosage: 50 MG, UNK
     Route: 048
  2. SANDIMMUNE [Suspect]
     Indication: IMMUNOSUPPRESSION
     Dosage: 100 MG, 50 MG IN THE MORNING, 50 MG AT NIGHT
     Route: 048

REACTIONS (2)
  - RENAL IMPAIRMENT [None]
  - HYPERTENSION [None]
